FAERS Safety Report 21311127 (Version 1)
Quarter: 2022Q3

REPORT INFORMATION
  Report Type: Spontaneous
  Country: US (occurrence: None)
  Receive Date: 20220909
  Receipt Date: 20220909
  Transmission Date: 20221027
  Serious: No
  Sender: FDA-Public Use
  Company Number: US-FARMAPROD-202201-0100

PATIENT
  Sex: Female

DRUGS (19)
  1. OXERVATE [Suspect]
     Active Substance: CENEGERMIN-BKBJ
     Indication: Neurotrophic keratopathy
     Route: 047
     Dates: start: 20211209, end: 20220209
  2. XIIDRA [Concomitant]
     Active Substance: LIFITEGRAST
  3. PATADAY ONCE DAILY RELIEF [Concomitant]
     Active Substance: OLOPATADINE HYDROCHLORIDE
  4. REFRESH OPTIVE MEGA-3 [Concomitant]
     Active Substance: CARBOXYMETHYLCELLULOSE SODIUM\GLYCERIN\POLYSORBATE 80
  5. LOTEMAX [Concomitant]
     Active Substance: LOTEPREDNOL ETABONATE
     Dosage: DROPS GEL
  6. CALCIUM [Concomitant]
     Active Substance: CALCIUM
     Dosage: 500 (1250)
  7. POTASSIUM PHOSPHATE [Concomitant]
     Active Substance: POTASSIUM PHOSPHATE
     Dosage: CRYSTALS
  8. FISH OIL [Concomitant]
     Active Substance: FISH OIL
  9. VITAMIN D2 [Concomitant]
     Active Substance: ERGOCALCIFEROL
  10. SUDAFED [Concomitant]
     Active Substance: PSEUDOEPHEDRINE HYDROCHLORIDE
     Dosage: 12 HOURS SUSTAINED RELEASE.
  11. TYLENOL [Concomitant]
     Active Substance: ACETAMINOPHEN
  12. ASPIRIN [Concomitant]
     Active Substance: ASPIRIN
  13. OMEPRAZOLE [Concomitant]
     Active Substance: OMEPRAZOLE
  14. ALLOPURINOL [Concomitant]
     Active Substance: ALLOPURINOL
  15. TRAZODONE HCL [Concomitant]
     Active Substance: TRAZODONE HYDROCHLORIDE
  16. ABILIFY [Concomitant]
     Active Substance: ARIPIPRAZOLE
  17. VENLAFAXINE HCL [Concomitant]
     Active Substance: VENLAFAXINE HYDROCHLORIDE
  18. LEVOTHYROXINE [Concomitant]
     Active Substance: LEVOTHYROXINE
  19. AMLODIPINE BESYLATE [Concomitant]
     Active Substance: AMLODIPINE BESYLATE

REACTIONS (2)
  - Eye pain [Unknown]
  - Wrong technique in product usage process [Unknown]
